FAERS Safety Report 20967381 (Version 1)
Quarter: 2022Q2

REPORT INFORMATION
  Report Type: Spontaneous
  Country: US (occurrence: US)
  Receive Date: 20220616
  Receipt Date: 20220616
  Transmission Date: 20220721
  Serious: No
  Sender: FDA-Public Use
  Company Number: US-PFIZER INC-202200841352

PATIENT
  Age: 73 Year
  Sex: Female
  Weight: 83.91 kg

DRUGS (1)
  1. METOPROLOL TARTRATE [Suspect]
     Active Substance: METOPROLOL TARTRATE
     Indication: Atrial fibrillation
     Dosage: 25 BUT IT HAD HER TOO LOW SO SHE WENT TO 12.5 ONE TIME A DAY

REACTIONS (2)
  - Hypotension [Unknown]
  - Off label use [Unknown]
